FAERS Safety Report 6238299-1 (Version None)
Quarter: 2009Q2

REPORT INFORMATION
  Report Type: 
  Country: None (occurrence: None)
  Receive Date: 20090622
  Receipt Date: 20090616
  Transmission Date: 20091009
  Serious: Yes (Hospitalization)
  Sender: FDA-Public Use
  Company Number: US-KINGPHARMUSA00001-K200900719

PATIENT
  Age: 52 Year
  Sex: Female

DRUGS (6)
  1. ALTACE [Suspect]
     Indication: HYPERTENSION
     Dosage: UNK
     Dates: start: 20060101, end: 20060101
  2. LEVOXYL [Suspect]
     Dosage: 100 UG, QD
  3. LITHIONIT [Suspect]
     Indication: BIPOLAR DISORDER
     Dosage: 83 MG, QD
     Route: 048
     Dates: start: 19950101
  4. ADALAT [Suspect]
     Indication: HYPERTENSION
     Dosage: UNK
     Dates: start: 20060101
  5. CENTYL [Suspect]
     Indication: HYPERTENSION
     Dosage: UNK
     Dates: start: 20060101
  6. ATACAND [Suspect]
     Indication: HYPERTENSION
     Dosage: 8 MG, QD
     Dates: start: 20060101

REACTIONS (13)
  - DIZZINESS EXERTIONAL [None]
  - DYSPHAGIA [None]
  - DYSPNOEA [None]
  - MANIA [None]
  - MASTICATION DISORDER [None]
  - OLIGURIA [None]
  - ORTHOPNOEA [None]
  - PARANOIA [None]
  - SENSORY DISTURBANCE [None]
  - SLEEP DISORDER [None]
  - TEMPERATURE REGULATION DISORDER [None]
  - THERAPEUTIC AGENT TOXICITY [None]
  - THYROID FUNCTION TEST ABNORMAL [None]
